FAERS Safety Report 21257508 (Version 1)
Quarter: 2022Q3

REPORT INFORMATION
  Report Type: Spontaneous
  Country: FR (occurrence: FR)
  Receive Date: 20220826
  Receipt Date: 20220826
  Transmission Date: 20221027
  Serious: Yes (Hospitalization)
  Sender: FDA-Public Use
  Company Number: None

PATIENT
  Age: 75 Year
  Sex: Male
  Weight: 71.2 kg

DRUGS (13)
  1. RAMIPRIL [Suspect]
     Active Substance: RAMIPRIL
     Indication: Hypertension
     Dosage: UNIT DOSE :2.5 MG , FREQUENCY TIME : 1 DAY ,   DURATION :76 DAYS
     Route: 065
     Dates: start: 20220126, end: 20220412
  2. CEFEPIME [Suspect]
     Active Substance: CEFEPIME HYDROCHLORIDE
     Indication: Infection
     Dosage: UNIT DOSE : 4 GRAM, FREQUENCY TIME : 1 DAY ,  DURATION 32 DAYS
     Route: 065
     Dates: start: 20220311, end: 20220412
  3. LANSOPRAZOLE [Concomitant]
     Active Substance: LANSOPRAZOLE
     Indication: Product used for unknown indication
     Dosage: UNIT DOSE : 15 MG, FREQUENCY TIME : 1 DAY ,  THERAPY START DATE : ASKU
  4. BISOPROLOL FUMARATE [Concomitant]
     Active Substance: BISOPROLOL FUMARATE
     Indication: Product used for unknown indication
     Dosage: UNIT DOSE : 4 MG, FREQUENCY TIME : 1 DAY ,  THERAPY START DATE : ASKU
  5. SERETIDE [Concomitant]
     Active Substance: FLUTICASONE PROPIONATE\SALMETEROL XINAFOATE
     Indication: Product used for unknown indication
     Dosage: UNIT DOSE : 2 DOSAGE FORMS, FREQUENCY TIME : 1 DAY ,  THERAPY START DATE : ASKU
  6. FUROSEMIDE [Concomitant]
     Active Substance: FUROSEMIDE
     Indication: Product used for unknown indication
     Dosage: UNIT DOSE : 40MG, FREQUENCY TIME : 1 DAY ,  THERAPY START DATE : ASKU
     Dates: end: 20220412
  7. UMULINE [Concomitant]
     Active Substance: INSULIN HUMAN
     Indication: Product used for unknown indication
     Dosage: UNIT DOSE :22 IU , FREQUENCY TIME : 1 DAY ,  THERAPY START DATE : ASKU
  8. HYDROCORTISONE HEMISUCCINATE [Concomitant]
     Active Substance: HYDROCORTISONE HEMISUCCINATE
     Indication: Product used for unknown indication
     Dosage: UNIT DOSE : 40 MG, FREQUENCY TIME : 1 DAY ,  THERAPY START DATE : ASKU
  9. HUMALOG [Concomitant]
     Active Substance: INSULIN LISPRO
     Indication: Product used for unknown indication
     Dosage: UNIT DOSE : 4 IU, FREQUENCY TIME : 1 DAY ,  THERAPY START DATE : ASKU
  10. POTASSIUM CHLORIDE [Concomitant]
     Active Substance: POTASSIUM CHLORIDE
     Indication: Product used for unknown indication
     Dosage: UNIT DOSE : 1200MG, FREQUENCY TIME : 1 DAY ,  THERAPY START DATE : ASKU
     Dates: end: 20220412
  11. MONTELUKAST SODIUM [Concomitant]
     Active Substance: MONTELUKAST SODIUM
     Indication: Product used for unknown indication
     Dosage: UNIT DOSE : 10MG , FREQUENCY TIME : 1 DAY ,  THERAPY START DATE : ASKU
  12. ATORVASTATIN [Concomitant]
     Active Substance: ATORVASTATIN
     Indication: Product used for unknown indication
     Dosage: UNIT DOSE : 20MG , FREQUENCY TIME : 1 DAY, THERAPY START DATE : ASKU
     Dates: end: 20220614
  13. KARDEGIC [Concomitant]
     Active Substance: ASPIRIN DL-LYSINE
     Indication: Product used for unknown indication
     Dosage: UNIT DOSE AND STRENGTH : 75 MG, SACHET-DOSE, FREQUENCY TIME : 1 DAY, THERAPY START DATE : ASKU

REACTIONS (2)
  - Rash maculo-papular [Recovering/Resolving]
  - Acute kidney injury [Recovering/Resolving]

NARRATIVE: CASE EVENT DATE: 20220404
